FAERS Safety Report 9395919 (Version 2)
Quarter: 2013Q3

REPORT INFORMATION
  Report Type: Spontaneous
  Country: DK (occurrence: FR)
  Receive Date: 20130711
  Receipt Date: 20130828
  Transmission Date: 20140515
  Serious: Yes (Other)
  Sender: FDA-Public Use
  Company Number: FR-FRI-1000046613

PATIENT
  Age: 34 Year
  Sex: Female

DRUGS (2)
  1. ESCITALOPRAM [Suspect]
     Indication: DEPRESSION
     Dosage: 1 DF
     Route: 048
     Dates: start: 20130201, end: 20130713
  2. SERESTA [Concomitant]
     Dosage: 1 DF
     Route: 048
     Dates: start: 20130201

REACTIONS (1)
  - Spontaneous haematoma [Recovered/Resolved]
